FAERS Safety Report 7730275-2 (Version None)
Quarter: 2011Q3

REPORT INFORMATION
  Report Type: 
  Country: None (occurrence: None)
  Receive Date: 20110906
  Receipt Date: 20110824
  Transmission Date: 20111222
  Serious: Yes (Hospitalization)
  Sender: FDA-Public Use
  Company Number: DE-UCBSA-034560

PATIENT
  Sex: Male

DRUGS (2)
  1. LISKANTIN [Concomitant]
     Indication: SUBDURAL HAEMATOMA
  2. KEPPRA [Suspect]
     Dates: start: 20090927, end: 20110414

REACTIONS (1)
  - CONVULSION [None]
